FAERS Safety Report 23920428 (Version 2)
Quarter: 2024Q3

REPORT INFORMATION
  Report Type: Spontaneous
  Country: FR (occurrence: FR)
  Receive Date: 20240530
  Receipt Date: 20240708
  Transmission Date: 20241017
  Serious: Yes (Other)
  Sender: AMGEN
  Company Number: FR-AMGEN-FRASP2024101759

PATIENT
  Sex: Female

DRUGS (3)
  1. REPATHA [Suspect]
     Active Substance: EVOLOCUMAB
     Indication: Product used for unknown indication
     Dosage: 140 MILLIGRAM, Q2WK
     Route: 065
     Dates: start: 202312
  2. REPATHA [Suspect]
     Active Substance: EVOLOCUMAB
     Dosage: 140 MILLIGRAM, QMO
     Route: 065
     Dates: start: 202312
  3. ROSUVASTATIN [Concomitant]
     Active Substance: ROSUVASTATIN

REACTIONS (5)
  - Chronic kidney disease [Unknown]
  - Intentional product misuse [Unknown]
  - Myalgia [Recovering/Resolving]
  - Arthralgia [Recovering/Resolving]
  - Pain in extremity [Recovering/Resolving]

NARRATIVE: CASE EVENT DATE: 20230506
